FAERS Safety Report 17356696 (Version 2)
Quarter: 2020Q1

REPORT INFORMATION
  Report Type: Spontaneous
  Country: JP (occurrence: JP)
  Receive Date: 20200131
  Receipt Date: 20200309
  Transmission Date: 20200409
  Serious: Yes (Life-Threatening, Other)
  Sender: FDA-Public Use
  Company Number: JP-BRISTOL-MYERS SQUIBB COMPANY-BMS-2018-053121

PATIENT
  Age: 63 Year
  Sex: Male
  Weight: 68.5 kg

DRUGS (5)
  1. OPDIVO [Suspect]
     Active Substance: NIVOLUMAB
     Indication: HEAD AND NECK CANCER
     Dosage: 205.5 MG, UNK
     Route: 041
     Dates: start: 20171109, end: 20181025
  2. PACLITAXEL. [Suspect]
     Active Substance: PACLITAXEL
     Indication: HEAD AND NECK CANCER
     Dosage: 140.9 MILLIGRAM
     Route: 065
     Dates: start: 20190702
  3. ERBITUX [Suspect]
     Active Substance: CETUXIMAB
     Indication: HEAD AND NECK CANCER
     Dosage: 700 MILLIGRAM
     Route: 065
     Dates: start: 20190702
  4. OPDIVO [Suspect]
     Active Substance: NIVOLUMAB
     Indication: PRODUCT USED FOR UNKNOWN INDICATION
     Dosage: 240 MILLIGRAM
     Route: 041
     Dates: start: 20181108, end: 20190611
  5. THYRADIN S [Concomitant]
     Active Substance: LEVOTHYROXINE SODIUM
     Indication: HYPOTHYROIDISM
     Dosage: 50 MG, UNK
     Route: 048
     Dates: start: 20170404

REACTIONS (7)
  - Neutrophil count decreased [Recovering/Resolving]
  - Platelet count decreased [Recovered/Resolved]
  - Rash [Not Recovered/Not Resolved]
  - Ventricular arrhythmia [Recovered/Resolved]
  - White blood cell count decreased [Recovering/Resolving]
  - Biliary colic [Recovered/Resolved]
  - Eosinophil count increased [Not Recovered/Not Resolved]

NARRATIVE: CASE EVENT DATE: 20171109
